FAERS Safety Report 9075719 (Version 1)
Quarter: 2013Q1

REPORT INFORMATION
  Report Type: Spontaneous
  Country: PR (occurrence: PR)
  Receive Date: 20130131
  Receipt Date: 20130131
  Transmission Date: 20140127
  Serious: No
  Sender: FDA-Public Use
  Company Number: PR-ABBOTT-12P-131-1001803-00

PATIENT
  Sex: Male

DRUGS (5)
  1. HUMIRA [Suspect]
     Indication: ARTHRITIS
     Route: 058
     Dates: start: 201205, end: 201210
  2. HUMIRA [Suspect]
     Dates: start: 201211
  3. AZULFIDINE [Concomitant]
     Indication: ARTHRITIS
     Route: 048
     Dates: end: 201209
  4. FOLIC ACID [Concomitant]
     Indication: ARTHRITIS
     Route: 048
  5. METHOTREXATE [Concomitant]
     Indication: ARTHRITIS
     Dosage: 15 MG WEEKLY
     Route: 048

REACTIONS (3)
  - Malaise [Unknown]
  - Impetigo [Recovered/Resolved]
  - Rhinorrhoea [Recovered/Resolved]
